FAERS Safety Report 18315377 (Version 1)
Quarter: 2020Q3

REPORT INFORMATION
  Report Type: Other
  Country: CA (occurrence: CA)
  Receive Date: 20200926
  Receipt Date: 20200926
  Transmission Date: 20201103
  Serious: Yes (Other)
  Sender: FDA-Public Use
  Company Number: CA-CELLTRION INC.-2020CA027231

PATIENT

DRUGS (8)
  1. DIPHENHYDRAMINE. [Concomitant]
     Active Substance: DIPHENHYDRAMINE
  2. PNEUMOCOCCAL VACCINE CONJ 7V (CRM197) [Concomitant]
     Active Substance: PNEUMOCOCCAL 7-VALENT CONJUGATE VACCINE (DIPHTHERIA CRM197 PROTEIN)
  3. RAMIPRIL. [Concomitant]
     Active Substance: RAMIPRIL
  4. TYLENOL [Concomitant]
     Active Substance: ACETAMINOPHEN
  5. RITUXIMAB (UNKNOWN) [Suspect]
     Active Substance: RITUXIMAB
     Indication: MANTLE CELL LYMPHOMA
     Dosage: 849 MILLIGRAM, 1 EVERY 2 MONTHS
     Route: 042
  6. DIPHTHERIA TETANUS PERTUSSIS VACCINE ADSORBED [Concomitant]
  7. METHYLPREDNISOLONE. [Concomitant]
     Active Substance: METHYLPREDNISOLONE
  8. CARVEDILOL. [Concomitant]
     Active Substance: CARVEDILOL
     Route: 065

REACTIONS (2)
  - Cardiac output decreased [Not Recovered/Not Resolved]
  - Off label use [Unknown]
